FAERS Safety Report 23667283 (Version 2)
Quarter: 2025Q1

REPORT INFORMATION
  Report Type: Spontaneous
  Country: CA (occurrence: CA)
  Receive Date: 20240325
  Receipt Date: 20250320
  Transmission Date: 20250409
  Serious: Yes (Death, Life-Threatening, Hospitalization, Disabling, Other)
  Sender: Haleon PLC
  Company Number: CA-002147023-NVSC2024CA054138

PATIENT
  Age: 44 Year
  Sex: Female
  Weight: 78 kg

DRUGS (579)
  1. DICLOFENAC POTASSIUM [Suspect]
     Active Substance: DICLOFENAC POTASSIUM
     Indication: Product used for unknown indication
     Route: 048
  2. FLUMETHASONE PIVALATE [Suspect]
     Active Substance: FLUMETHASONE PIVALATE
     Indication: Rheumatoid arthritis
     Route: 003
  3. FLUMETHASONE PIVALATE [Suspect]
     Active Substance: FLUMETHASONE PIVALATE
     Indication: Product used for unknown indication
     Route: 065
  4. FLUMETHASONE PIVALATE [Suspect]
     Active Substance: FLUMETHASONE PIVALATE
     Route: 065
  5. CALCIUM GLUBIONATE [Suspect]
     Active Substance: CALCIUM GLUBIONATE
     Indication: Product used for unknown indication
     Route: 016
  6. CALCIUM GLUBIONATE [Suspect]
     Active Substance: CALCIUM GLUBIONATE
     Route: 065
  7. CALCIUM GLUBIONATE [Suspect]
     Active Substance: CALCIUM GLUBIONATE
     Route: 065
  8. ALENDRONIC ACID [Suspect]
     Active Substance: ALENDRONIC ACID
     Indication: Rheumatoid arthritis
     Route: 065
  9. ALENDRONIC ACID [Suspect]
     Active Substance: ALENDRONIC ACID
     Indication: Product used for unknown indication
     Route: 048
  10. ALENDRONIC ACID [Suspect]
     Active Substance: ALENDRONIC ACID
     Route: 065
  11. ALENDRONIC ACID [Suspect]
     Active Substance: ALENDRONIC ACID
     Route: 016
  12. ALENDRONIC ACID [Suspect]
     Active Substance: ALENDRONIC ACID
     Route: 065
  13. ALENDRONIC ACID [Suspect]
     Active Substance: ALENDRONIC ACID
     Route: 065
  14. ALENDRONIC ACID [Suspect]
     Active Substance: ALENDRONIC ACID
     Route: 048
  15. ALENDRONIC ACID [Suspect]
     Active Substance: ALENDRONIC ACID
     Route: 048
  16. GOLIMUMAB [Suspect]
     Active Substance: GOLIMUMAB
     Indication: Rheumatoid arthritis
     Route: 058
  17. GOLIMUMAB [Suspect]
     Active Substance: GOLIMUMAB
     Indication: Product used for unknown indication
     Route: 065
  18. METHOTREXATE [Suspect]
     Active Substance: METHOTREXATE
     Indication: Rheumatoid arthritis
     Dosage: 20 MG, QD
     Route: 048
  19. METHOTREXATE [Suspect]
     Active Substance: METHOTREXATE
     Indication: Product used for unknown indication
     Route: 048
  20. METHOTREXATE [Suspect]
     Active Substance: METHOTREXATE
     Route: 058
  21. METHOTREXATE [Suspect]
     Active Substance: METHOTREXATE
     Route: 048
  22. METHOTREXATE [Suspect]
     Active Substance: METHOTREXATE
     Dosage: 20 MG, WE (20 MG, QW)
     Route: 048
  23. METHOTREXATE [Suspect]
     Active Substance: METHOTREXATE
     Dosage: 25 MG, QD
     Route: 048
  24. METHOTREXATE [Suspect]
     Active Substance: METHOTREXATE
     Route: 048
  25. METHOTREXATE [Suspect]
     Active Substance: METHOTREXATE
     Dosage: 25 MG, WE (25 MG, QW)
     Route: 048
  26. METHOTREXATE [Suspect]
     Active Substance: METHOTREXATE
     Route: 048
  27. METHOTREXATE [Suspect]
     Active Substance: METHOTREXATE
     Dosage: 25 MG
     Route: 013
  28. METHOTREXATE [Suspect]
     Active Substance: METHOTREXATE
     Route: 048
  29. METHOTREXATE [Suspect]
     Active Substance: METHOTREXATE
     Route: 048
  30. METHOTREXATE [Suspect]
     Active Substance: METHOTREXATE
     Dosage: 15 MG, QD
     Route: 048
  31. METHOTREXATE [Suspect]
     Active Substance: METHOTREXATE
     Route: 065
  32. METHOTREXATE [Suspect]
     Active Substance: METHOTREXATE
     Route: 065
  33. METHOTREXATE [Suspect]
     Active Substance: METHOTREXATE
     Dosage: 2 G, QD
     Route: 048
  34. METHOTREXATE [Suspect]
     Active Substance: METHOTREXATE
     Dosage: 25 MG, WE (25 MG, QW)
     Route: 048
  35. METHOTREXATE [Suspect]
     Active Substance: METHOTREXATE
     Dosage: 20 MG
     Route: 048
  36. METHOTREXATE [Suspect]
     Active Substance: METHOTREXATE
     Dosage: 2 G, WE (2 G, QW)
     Route: 048
  37. METHOTREXATE [Suspect]
     Active Substance: METHOTREXATE
     Dosage: 20 MG, WE (20 MG, QW)
     Route: 048
  38. NAPROXEN SODIUM [Suspect]
     Active Substance: NAPROXEN SODIUM
     Indication: Rheumatoid arthritis
     Dosage: 1000 MG, QD (500 MG, BID)
     Route: 065
  39. NAPROXEN SODIUM [Suspect]
     Active Substance: NAPROXEN SODIUM
     Indication: Product used for unknown indication
     Route: 065
  40. MYCOPHENOLATE MOFETIL [Suspect]
     Active Substance: MYCOPHENOLATE MOFETIL
     Indication: Product used for unknown indication
     Route: 065
  41. ENTYVIO [Suspect]
     Active Substance: VEDOLIZUMAB
     Indication: Product used for unknown indication
     Route: 065
  42. DILTIAZEM HYDROCHLORIDE [Suspect]
     Active Substance: DILTIAZEM HYDROCHLORIDE
     Indication: Product used for unknown indication
     Route: 042
  43. DILTIAZEM HYDROCHLORIDE [Suspect]
     Active Substance: DILTIAZEM HYDROCHLORIDE
     Route: 065
  44. LYRICA [Suspect]
     Active Substance: PREGABALIN
     Indication: Product used for unknown indication
     Route: 065
  45. REMICADE [Suspect]
     Active Substance: INFLIXIMAB
     Indication: Product used for unknown indication
     Route: 065
  46. REMICADE [Suspect]
     Active Substance: INFLIXIMAB
     Indication: Rheumatoid arthritis
     Route: 042
  47. REMICADE [Suspect]
     Active Substance: INFLIXIMAB
     Route: 042
  48. ISOPROPYL ALCOHOL [Suspect]
     Active Substance: ISOPROPYL ALCOHOL
     Indication: Product used for unknown indication
     Route: 061
  49. ISOPROPYL ALCOHOL [Suspect]
     Active Substance: ISOPROPYL ALCOHOL
     Route: 061
  50. PREDNISOLONE [Suspect]
     Active Substance: PREDNISOLONE
     Indication: Product used for unknown indication
     Route: 065
  51. PREDNISOLONE [Suspect]
     Active Substance: PREDNISOLONE
     Route: 048
  52. PREDNISOLONE [Suspect]
     Active Substance: PREDNISOLONE
     Route: 048
  53. PREDNISOLONE [Suspect]
     Active Substance: PREDNISOLONE
     Route: 065
  54. DICLOFENAC [Suspect]
     Active Substance: DICLOFENAC
     Indication: Product used for unknown indication
     Route: 058
  55. PREDNISONE [Suspect]
     Active Substance: PREDNISONE
     Indication: Psoriatic arthropathy
     Route: 065
  56. PREDNISONE [Suspect]
     Active Substance: PREDNISONE
     Indication: Rheumatoid arthritis
     Route: 065
  57. PREDNISONE [Suspect]
     Active Substance: PREDNISONE
     Indication: Condition aggravated
     Route: 065
  58. PREDNISONE [Suspect]
     Active Substance: PREDNISONE
     Indication: Product used for unknown indication
     Route: 048
  59. PREDNISONE [Suspect]
     Active Substance: PREDNISONE
     Route: 065
  60. PREDNISONE [Suspect]
     Active Substance: PREDNISONE
     Route: 048
  61. PREDNISONE [Suspect]
     Active Substance: PREDNISONE
     Route: 048
  62. PREDNISONE [Suspect]
     Active Substance: PREDNISONE
     Route: 048
  63. PREDNISONE [Suspect]
     Active Substance: PREDNISONE
     Route: 042
  64. PREDNISONE [Suspect]
     Active Substance: PREDNISONE
     Route: 048
  65. CHLORAPREP [Suspect]
     Active Substance: CHLORHEXIDINE GLUCONATE\ISOPROPYL ALCOHOL
     Indication: Product used for unknown indication
     Route: 065
  66. CHLORAPREP [Suspect]
     Active Substance: CHLORHEXIDINE GLUCONATE\ISOPROPYL ALCOHOL
     Route: 048
  67. CHLORAPREP [Suspect]
     Active Substance: CHLORHEXIDINE GLUCONATE\ISOPROPYL ALCOHOL
     Route: 061
  68. CHLORAPREP [Suspect]
     Active Substance: CHLORHEXIDINE GLUCONATE\ISOPROPYL ALCOHOL
     Route: 061
  69. FOLIC ACID [Suspect]
     Active Substance: FOLIC ACID
     Indication: Rheumatoid arthritis
     Route: 065
  70. FOLIC ACID [Suspect]
     Active Substance: FOLIC ACID
     Indication: Product used for unknown indication
     Route: 058
  71. FOLIC ACID [Suspect]
     Active Substance: FOLIC ACID
     Route: 065
  72. FOLIC ACID [Suspect]
     Active Substance: FOLIC ACID
     Route: 048
  73. FOLIC ACID [Suspect]
     Active Substance: FOLIC ACID
     Route: 065
  74. FOLIC ACID [Suspect]
     Active Substance: FOLIC ACID
     Route: 065
  75. FOLIC ACID [Suspect]
     Active Substance: FOLIC ACID
     Route: 065
  76. FOLIC ACID [Suspect]
     Active Substance: FOLIC ACID
     Route: 065
  77. FOLIC ACID [Suspect]
     Active Substance: FOLIC ACID
     Route: 065
  78. FOLIC ACID [Suspect]
     Active Substance: FOLIC ACID
     Route: 065
  79. FOLIC ACID [Suspect]
     Active Substance: FOLIC ACID
     Route: 048
  80. FOLIC ACID [Suspect]
     Active Substance: FOLIC ACID
     Route: 048
  81. FOLIC ACID [Suspect]
     Active Substance: FOLIC ACID
     Route: 065
  82. FOLIC ACID [Suspect]
     Active Substance: FOLIC ACID
     Route: 065
  83. FOLIC ACID [Suspect]
     Active Substance: FOLIC ACID
     Route: 065
  84. FOLIC ACID [Suspect]
     Active Substance: FOLIC ACID
     Route: 065
  85. FOLIC ACID [Suspect]
     Active Substance: FOLIC ACID
     Route: 048
  86. FOLIC ACID [Suspect]
     Active Substance: FOLIC ACID
     Route: 065
  87. FOLIC ACID [Suspect]
     Active Substance: FOLIC ACID
     Route: 065
  88. FOLIC ACID [Suspect]
     Active Substance: FOLIC ACID
     Route: 065
  89. FOLIC ACID [Suspect]
     Active Substance: FOLIC ACID
     Route: 065
  90. FOLIC ACID [Suspect]
     Active Substance: FOLIC ACID
     Route: 048
  91. FOLIC ACID [Suspect]
     Active Substance: FOLIC ACID
     Route: 065
  92. CHLORHEXIDINE GLUCONATE [Suspect]
     Active Substance: CHLORHEXIDINE GLUCONATE
     Indication: Product used for unknown indication
     Route: 061
  93. CHLORHEXIDINE GLUCONATE [Suspect]
     Active Substance: CHLORHEXIDINE GLUCONATE
     Route: 048
  94. CHLORHEXIDINE GLUCONATE [Suspect]
     Active Substance: CHLORHEXIDINE GLUCONATE
     Route: 061
  95. CHLORHEXIDINE GLUCONATE [Suspect]
     Active Substance: CHLORHEXIDINE GLUCONATE
     Route: 065
  96. CHLORHEXIDINE GLUCONATE [Suspect]
     Active Substance: CHLORHEXIDINE GLUCONATE
     Route: 065
  97. CHLORHEXIDINE GLUCONATE [Suspect]
     Active Substance: CHLORHEXIDINE GLUCONATE
     Route: 065
  98. CHLORHEXIDINE GLUCONATE [Suspect]
     Active Substance: CHLORHEXIDINE GLUCONATE
     Route: 065
  99. CHLORHEXIDINE GLUCONATE [Suspect]
     Active Substance: CHLORHEXIDINE GLUCONATE
     Route: 002
  100. CHLORHEXIDINE GLUCONATE [Suspect]
     Active Substance: CHLORHEXIDINE GLUCONATE
     Route: 002
  101. TUMS [Suspect]
     Active Substance: CALCIUM CARBONATE
     Indication: Product used for unknown indication
     Route: 065
  102. OXYCODONE [Suspect]
     Active Substance: OXYCODONE
     Indication: Product used for unknown indication
     Route: 065
  103. COSENTYX [Suspect]
     Active Substance: SECUKINUMAB
     Indication: Rheumatoid arthritis
     Route: 042
  104. COSENTYX [Suspect]
     Active Substance: SECUKINUMAB
     Indication: Product used for unknown indication
     Route: 042
  105. COSENTYX [Suspect]
     Active Substance: SECUKINUMAB
     Indication: Psoriatic arthropathy
     Route: 005
  106. COSENTYX [Suspect]
     Active Substance: SECUKINUMAB
     Route: 042
  107. COSENTYX [Suspect]
     Active Substance: SECUKINUMAB
     Route: 005
  108. VOLTAREN [Suspect]
     Active Substance: DICLOFENAC SODIUM
     Indication: Product used for unknown indication
     Route: 065
  109. VOLTAREN [Suspect]
     Active Substance: DICLOFENAC SODIUM
     Route: 047
  110. VOLTAREN [Suspect]
     Active Substance: DICLOFENAC SODIUM
     Route: 065
  111. VOLTAREN [Suspect]
     Active Substance: DICLOFENAC SODIUM
     Route: 065
  112. VOLTAREN [Suspect]
     Active Substance: DICLOFENAC SODIUM
     Route: 065
  113. VOLTAREN [Suspect]
     Active Substance: DICLOFENAC SODIUM
     Route: 048
  114. VOLTAREN [Suspect]
     Active Substance: DICLOFENAC SODIUM
     Route: 047
  115. VOLTAREN [Suspect]
     Active Substance: DICLOFENAC SODIUM
     Route: 065
  116. VOLTAREN [Suspect]
     Active Substance: DICLOFENAC SODIUM
     Route: 058
  117. DICLOFENAC SODIUM [Suspect]
     Active Substance: DICLOFENAC SODIUM
     Indication: Product used for unknown indication
     Route: 065
  118. DICLOFENAC SODIUM [Suspect]
     Active Substance: DICLOFENAC SODIUM
     Route: 047
  119. DICLOFENAC SODIUM [Suspect]
     Active Substance: DICLOFENAC SODIUM
     Route: 048
  120. SULFASALAZINE [Suspect]
     Active Substance: SULFASALAZINE
     Indication: Product used for unknown indication
     Route: 048
  121. SULFASALAZINE [Suspect]
     Active Substance: SULFASALAZINE
     Route: 048
  122. SULFASALAZINE [Suspect]
     Active Substance: SULFASALAZINE
     Route: 048
  123. SULFASALAZINE [Suspect]
     Active Substance: SULFASALAZINE
     Route: 048
  124. SULFASALAZINE [Suspect]
     Active Substance: SULFASALAZINE
     Route: 048
  125. SULFASALAZINE [Suspect]
     Active Substance: SULFASALAZINE
     Route: 048
  126. SULFASALAZINE [Suspect]
     Active Substance: SULFASALAZINE
     Route: 058
  127. SULFASALAZINE [Suspect]
     Active Substance: SULFASALAZINE
     Route: 048
  128. SULFASALAZINE [Suspect]
     Active Substance: SULFASALAZINE
     Route: 048
  129. SULFASALAZINE [Suspect]
     Active Substance: SULFASALAZINE
     Route: 048
  130. SULFASALAZINE [Suspect]
     Active Substance: SULFASALAZINE
     Route: 048
  131. SULFASALAZINE [Suspect]
     Active Substance: SULFASALAZINE
     Route: 048
  132. SULFASALAZINE [Suspect]
     Active Substance: SULFASALAZINE
     Route: 048
  133. SULFASALAZINE [Suspect]
     Active Substance: SULFASALAZINE
     Route: 058
  134. SULFASALAZINE [Suspect]
     Active Substance: SULFASALAZINE
     Route: 048
  135. SULFASALAZINE [Suspect]
     Active Substance: SULFASALAZINE
     Route: 048
  136. SULFASALAZINE [Suspect]
     Active Substance: SULFASALAZINE
     Route: 058
  137. SULFASALAZINE [Suspect]
     Active Substance: SULFASALAZINE
     Route: 048
  138. SULFASALAZINE [Suspect]
     Active Substance: SULFASALAZINE
     Route: 065
  139. SULFASALAZINE [Suspect]
     Active Substance: SULFASALAZINE
     Route: 048
  140. SULFASALAZINE [Suspect]
     Active Substance: SULFASALAZINE
     Route: 048
  141. SULFASALAZINE [Suspect]
     Active Substance: SULFASALAZINE
     Route: 048
  142. SULFASALAZINE [Suspect]
     Active Substance: SULFASALAZINE
     Route: 048
  143. SULFASALAZINE [Suspect]
     Active Substance: SULFASALAZINE
     Dosage: DURATION 365 DAYS
     Route: 048
  144. SULFASALAZINE [Suspect]
     Active Substance: SULFASALAZINE
     Route: 065
  145. SULFASALAZINE [Suspect]
     Active Substance: SULFASALAZINE
     Route: 048
  146. SULFASALAZINE [Suspect]
     Active Substance: SULFASALAZINE
     Route: 048
  147. SULFASALAZINE [Suspect]
     Active Substance: SULFASALAZINE
     Route: 065
  148. SULFASALAZINE [Suspect]
     Active Substance: SULFASALAZINE
     Route: 065
  149. SULFASALAZINE [Suspect]
     Active Substance: SULFASALAZINE
     Route: 065
  150. SULFASALAZINE [Suspect]
     Active Substance: SULFASALAZINE
  151. FOLIC ACID [Suspect]
     Active Substance: FOLIC ACID
     Indication: Rheumatoid arthritis
     Route: 065
  152. FOLIC ACID [Suspect]
     Active Substance: FOLIC ACID
     Route: 065
  153. FOLIC ACID [Suspect]
     Active Substance: FOLIC ACID
     Route: 065
  154. FOLIC ACID [Suspect]
     Active Substance: FOLIC ACID
     Route: 065
  155. FOLIC ACID [Suspect]
     Active Substance: FOLIC ACID
     Route: 065
  156. FOLIC ACID [Suspect]
     Active Substance: FOLIC ACID
     Route: 065
  157. FOLIC ACID [Suspect]
     Active Substance: FOLIC ACID
     Dosage: 1 MG, QD
     Route: 065
  158. FOLIC ACID [Suspect]
     Active Substance: FOLIC ACID
     Route: 058
  159. FOLIC ACID [Suspect]
     Active Substance: FOLIC ACID
     Route: 048
  160. FOLIC ACID [Suspect]
     Active Substance: FOLIC ACID
     Route: 065
  161. FOLIC ACID [Suspect]
     Active Substance: FOLIC ACID
     Route: 048
  162. FOLIC ACID [Suspect]
     Active Substance: FOLIC ACID
     Route: 065
  163. FOLIC ACID [Suspect]
     Active Substance: FOLIC ACID
     Route: 065
  164. FOLIC ACID [Suspect]
     Active Substance: FOLIC ACID
     Route: 048
  165. FOLIC ACID [Suspect]
     Active Substance: FOLIC ACID
     Route: 065
  166. FOLIC ACID [Suspect]
     Active Substance: FOLIC ACID
     Dosage: 5 MG, QD
     Route: 065
  167. FOLIC ACID [Suspect]
     Active Substance: FOLIC ACID
     Route: 065
  168. FOLIC ACID [Suspect]
     Active Substance: FOLIC ACID
     Route: 065
  169. FOLIC ACID [Suspect]
     Active Substance: FOLIC ACID
     Route: 048
  170. FOLIC ACID [Suspect]
     Active Substance: FOLIC ACID
     Route: 048
  171. DICLOFENAC [Suspect]
     Active Substance: DICLOFENAC
     Indication: Product used for unknown indication
     Route: 048
  172. ALENDRONATE SODIUM [Suspect]
     Active Substance: ALENDRONATE SODIUM
     Indication: Rheumatoid arthritis
     Route: 048
  173. ALENDRONATE SODIUM [Suspect]
     Active Substance: ALENDRONATE SODIUM
     Route: 048
  174. ALENDRONATE SODIUM [Suspect]
     Active Substance: ALENDRONATE SODIUM
     Route: 065
  175. ADALIMUMAB [Suspect]
     Active Substance: ADALIMUMAB
     Indication: Rheumatoid arthritis
     Route: 048
  176. ADALIMUMAB [Suspect]
     Active Substance: ADALIMUMAB
     Indication: Psoriatic arthropathy
     Route: 065
  177. ADALIMUMAB [Suspect]
     Active Substance: ADALIMUMAB
     Indication: Product used for unknown indication
     Route: 042
  178. ADALIMUMAB [Suspect]
     Active Substance: ADALIMUMAB
     Route: 058
  179. ADALIMUMAB [Suspect]
     Active Substance: ADALIMUMAB
     Route: 058
  180. PREDNISONE [Suspect]
     Active Substance: PREDNISONE
     Indication: Rheumatoid arthritis
     Route: 048
  181. DILTIAZEM HYDROCHLORIDE [Suspect]
     Active Substance: DILTIAZEM HYDROCHLORIDE
     Indication: Product used for unknown indication
     Route: 065
  182. APREPITANT [Suspect]
     Active Substance: APREPITANT
     Indication: Product used for unknown indication
     Route: 048
  183. APREPITANT [Suspect]
     Active Substance: APREPITANT
     Route: 065
  184. APREPITANT [Suspect]
     Active Substance: APREPITANT
     Route: 042
  185. APREPITANT [Suspect]
     Active Substance: APREPITANT
     Route: 042
  186. APREPITANT [Suspect]
     Active Substance: APREPITANT
     Route: 042
  187. DESOXIMETASONE [Suspect]
     Active Substance: DESOXIMETASONE
     Indication: Rheumatoid arthritis
     Route: 048
  188. DESOXIMETASONE [Suspect]
     Active Substance: DESOXIMETASONE
     Indication: Product used for unknown indication
     Route: 003
  189. DESOXIMETASONE [Suspect]
     Active Substance: DESOXIMETASONE
     Route: 061
  190. DESOXIMETASONE [Suspect]
     Active Substance: DESOXIMETASONE
     Route: 061
  191. DESOXIMETASONE [Suspect]
     Active Substance: DESOXIMETASONE
     Route: 061
  192. DESOXIMETASONE [Suspect]
     Active Substance: DESOXIMETASONE
     Route: 058
  193. DESOXIMETASONE [Suspect]
     Active Substance: DESOXIMETASONE
     Route: 065
  194. DESOXIMETASONE [Suspect]
     Active Substance: DESOXIMETASONE
     Route: 003
  195. DESOXIMETASONE [Suspect]
     Active Substance: DESOXIMETASONE
     Route: 048
  196. DESOXIMETASONE [Suspect]
     Active Substance: DESOXIMETASONE
     Route: 065
  197. DESOXIMETASONE [Suspect]
     Active Substance: DESOXIMETASONE
     Route: 048
  198. DESOXIMETASONE [Suspect]
     Active Substance: DESOXIMETASONE
     Route: 061
  199. DESOXIMETASONE [Suspect]
     Active Substance: DESOXIMETASONE
     Route: 058
  200. DESOXIMETASONE [Suspect]
     Active Substance: DESOXIMETASONE
     Route: 048
  201. DESOXIMETASONE [Suspect]
     Active Substance: DESOXIMETASONE
     Route: 042
  202. DESOXIMETASONE [Suspect]
     Active Substance: DESOXIMETASONE
     Route: 065
  203. DESOXIMETASONE [Suspect]
     Active Substance: DESOXIMETASONE
     Dosage: 25 MG, WE (25 MG, QW)
     Route: 048
  204. DESOXIMETASONE [Suspect]
     Active Substance: DESOXIMETASONE
     Route: 058
  205. DESOXIMETASONE [Suspect]
     Active Substance: DESOXIMETASONE
     Route: 065
  206. DESOXIMETASONE [Suspect]
     Active Substance: DESOXIMETASONE
     Route: 003
  207. DESOXIMETASONE [Suspect]
     Active Substance: DESOXIMETASONE
     Route: 042
  208. DESOXIMETASONE [Suspect]
     Active Substance: DESOXIMETASONE
     Route: 058
  209. DESOXIMETASONE [Suspect]
     Active Substance: DESOXIMETASONE
     Route: 065
  210. DESOXIMETASONE [Suspect]
     Active Substance: DESOXIMETASONE
     Route: 048
  211. DESOXIMETASONE [Suspect]
     Active Substance: DESOXIMETASONE
     Route: 048
  212. DESOXIMETASONE [Suspect]
     Active Substance: DESOXIMETASONE
     Route: 003
  213. DESOXIMETASONE [Suspect]
     Active Substance: DESOXIMETASONE
     Route: 058
  214. DESOXIMETASONE [Suspect]
     Active Substance: DESOXIMETASONE
     Route: 048
  215. DESOXIMETASONE [Suspect]
     Active Substance: DESOXIMETASONE
     Route: 050
  216. DESOXIMETASONE [Suspect]
     Active Substance: DESOXIMETASONE
     Route: 050
  217. DESOXIMETASONE [Suspect]
     Active Substance: DESOXIMETASONE
     Route: 048
  218. DESOXIMETASONE [Suspect]
     Active Substance: DESOXIMETASONE
     Route: 048
  219. DESOXIMETASONE [Suspect]
     Active Substance: DESOXIMETASONE
     Route: 003
  220. DESOXIMETASONE [Suspect]
     Active Substance: DESOXIMETASONE
     Dosage: UNK UNK, WE (UNK, QW)
     Route: 048
  221. DESOXIMETASONE [Suspect]
     Active Substance: DESOXIMETASONE
     Route: 061
  222. DESOXIMETASONE [Suspect]
     Active Substance: DESOXIMETASONE
     Route: 003
  223. DESOXIMETASONE [Suspect]
     Active Substance: DESOXIMETASONE
     Route: 065
  224. DESOXIMETASONE [Suspect]
     Active Substance: DESOXIMETASONE
     Route: 058
  225. DESOXIMETASONE [Suspect]
     Active Substance: DESOXIMETASONE
     Route: 065
  226. DESOXIMETASONE [Suspect]
     Active Substance: DESOXIMETASONE
     Route: 048
  227. DESOXIMETASONE [Suspect]
     Active Substance: DESOXIMETASONE
     Route: 003
  228. DESOXIMETASONE [Suspect]
     Active Substance: DESOXIMETASONE
     Route: 003
  229. DESOXIMETASONE [Suspect]
     Active Substance: DESOXIMETASONE
     Route: 003
  230. DESOXIMETASONE [Suspect]
     Active Substance: DESOXIMETASONE
     Route: 058
  231. DESOXIMETASONE [Suspect]
     Active Substance: DESOXIMETASONE
     Route: 058
  232. APREMILAST [Suspect]
     Active Substance: APREMILAST
     Indication: Product used for unknown indication
     Route: 065
  233. APREMILAST [Suspect]
     Active Substance: APREMILAST
     Route: 048
  234. DICLOFENAC [Suspect]
     Active Substance: DICLOFENAC
     Indication: Product used for unknown indication
     Route: 058
  235. ONEALFA [Suspect]
     Active Substance: ALFACALCIDOL
     Indication: Product used for unknown indication
     Route: 065
  236. FOLIC ACID [Suspect]
     Active Substance: FOLIC ACID
     Indication: Rheumatoid arthritis
     Route: 065
  237. ALENDRONATE SODIUM [Suspect]
     Active Substance: ALENDRONATE SODIUM
     Indication: Product used for unknown indication
     Route: 048
  238. ALENDRONATE SODIUM [Suspect]
     Active Substance: ALENDRONATE SODIUM
     Indication: Rheumatoid arthritis
     Route: 048
  239. ALENDRONATE SODIUM [Suspect]
     Active Substance: ALENDRONATE SODIUM
     Route: 065
  240. ADALIMUMAB [Suspect]
     Active Substance: ADALIMUMAB
     Indication: Rheumatoid arthritis
     Route: 058
  241. ADALIMUMAB [Suspect]
     Active Substance: ADALIMUMAB
     Indication: Psoriatic arthropathy
  242. INFLIXIMAB [Suspect]
     Active Substance: INFLIXIMAB
     Indication: Rheumatoid arthritis
     Route: 042
  243. INFLIXIMAB [Suspect]
     Active Substance: INFLIXIMAB
     Indication: Product used for unknown indication
     Route: 042
  244. INFLIXIMAB [Suspect]
     Active Substance: INFLIXIMAB
     Route: 042
  245. INFLIXIMAB [Suspect]
     Active Substance: INFLIXIMAB
     Route: 065
  246. INFLIXIMAB [Suspect]
     Active Substance: INFLIXIMAB
     Route: 065
  247. CELEBREX [Suspect]
     Active Substance: CELECOXIB
     Indication: Arthritis
     Route: 065
  248. CELEBREX [Suspect]
     Active Substance: CELECOXIB
     Indication: Rheumatoid arthritis
     Dosage: 1 DF, QD (1 DOSAGE FORM, QD)
     Route: 048
  249. CELEBREX [Suspect]
     Active Substance: CELECOXIB
     Route: 048
  250. CELEBREX [Suspect]
     Active Substance: CELECOXIB
     Dosage: 2 DF, QW
     Route: 048
  251. OXYCODONE HYDROCHLORIDE [Suspect]
     Active Substance: OXYCODONE HYDROCHLORIDE
     Indication: Product used for unknown indication
     Route: 065
  252. OXYCODONE HYDROCHLORIDE [Suspect]
     Active Substance: OXYCODONE HYDROCHLORIDE
     Route: 065
  253. HUMIRA [Suspect]
     Active Substance: ADALIMUMAB
     Indication: Rheumatoid arthritis
     Route: 058
  254. HUMIRA [Suspect]
     Active Substance: ADALIMUMAB
     Indication: Psoriatic arthropathy
     Route: 058
  255. HUMIRA [Suspect]
     Active Substance: ADALIMUMAB
     Indication: Product used for unknown indication
     Route: 058
  256. HUMIRA [Suspect]
     Active Substance: ADALIMUMAB
     Route: 058
  257. HUMIRA [Suspect]
     Active Substance: ADALIMUMAB
     Route: 065
  258. RITUXIMAB [Suspect]
     Active Substance: RITUXIMAB
     Indication: Rheumatoid arthritis
     Route: 065
  259. RITUXIMAB [Suspect]
     Active Substance: RITUXIMAB
     Indication: Product used for unknown indication
     Route: 016
  260. RITUXIMAB [Suspect]
     Active Substance: RITUXIMAB
     Route: 042
  261. RITUXIMAB [Suspect]
     Active Substance: RITUXIMAB
     Route: 016
  262. RITUXIMAB [Suspect]
     Active Substance: RITUXIMAB
     Route: 058
  263. RITUXIMAB [Suspect]
     Active Substance: RITUXIMAB
     Route: 058
  264. DICLOFENAC DIETHYLAMINE [Suspect]
     Active Substance: DICLOFENAC DIETHYLAMINE
     Indication: Product used for unknown indication
     Route: 065
  265. OXYCODONE AND ACETAMINOPHEN [Suspect]
     Active Substance: ACETAMINOPHEN\OXYCODONE HYDROCHLORIDE
     Indication: Product used for unknown indication
     Route: 065
  266. TRIAMCINOLONE ACETONIDE [Suspect]
     Active Substance: TRIAMCINOLONE ACETONIDE
     Indication: Rheumatoid arthritis
     Route: 014
  267. CIMZIA [Suspect]
     Active Substance: CERTOLIZUMAB PEGOL
     Indication: Psoriatic arthropathy
     Route: 005
  268. CIMZIA [Suspect]
     Active Substance: CERTOLIZUMAB PEGOL
     Indication: Psoriasis
     Route: 065
  269. CIMZIA [Suspect]
     Active Substance: CERTOLIZUMAB PEGOL
     Indication: Rheumatoid arthritis
     Route: 065
  270. CIMZIA [Suspect]
     Active Substance: CERTOLIZUMAB PEGOL
     Indication: Product used for unknown indication
     Route: 065
  271. CIMZIA [Suspect]
     Active Substance: CERTOLIZUMAB PEGOL
     Route: 065
  272. CIMZIA [Suspect]
     Active Substance: CERTOLIZUMAB PEGOL
     Route: 058
  273. CIMZIA [Suspect]
     Active Substance: CERTOLIZUMAB PEGOL
     Route: 042
  274. CIMZIA [Suspect]
     Active Substance: CERTOLIZUMAB PEGOL
     Route: 005
  275. CIMZIA [Suspect]
     Active Substance: CERTOLIZUMAB PEGOL
     Route: 065
  276. CIMZIA [Suspect]
     Active Substance: CERTOLIZUMAB PEGOL
     Route: 065
  277. CIMZIA [Suspect]
     Active Substance: CERTOLIZUMAB PEGOL
     Route: 058
  278. CIMZIA [Suspect]
     Active Substance: CERTOLIZUMAB PEGOL
     Route: 042
  279. CIMZIA [Suspect]
     Active Substance: CERTOLIZUMAB PEGOL
     Route: 058
  280. CIMZIA [Suspect]
     Active Substance: CERTOLIZUMAB PEGOL
     Route: 058
  281. CIMZIA [Suspect]
     Active Substance: CERTOLIZUMAB PEGOL
     Route: 065
  282. CIMZIA [Suspect]
     Active Substance: CERTOLIZUMAB PEGOL
     Route: 058
  283. CIMZIA [Suspect]
     Active Substance: CERTOLIZUMAB PEGOL
     Route: 058
  284. CIMZIA [Suspect]
     Active Substance: CERTOLIZUMAB PEGOL
     Route: 065
  285. CIMZIA [Suspect]
     Active Substance: CERTOLIZUMAB PEGOL
     Route: 065
  286. CIMZIA [Suspect]
     Active Substance: CERTOLIZUMAB PEGOL
     Route: 058
  287. ACTEMRA [Suspect]
     Active Substance: TOCILIZUMAB
     Indication: Rheumatoid arthritis
     Route: 042
  288. ACTEMRA [Suspect]
     Active Substance: TOCILIZUMAB
     Indication: Product used for unknown indication
     Route: 065
  289. ACTEMRA [Suspect]
     Active Substance: TOCILIZUMAB
     Route: 058
  290. ACTEMRA [Suspect]
     Active Substance: TOCILIZUMAB
     Route: 061
  291. ACTEMRA [Suspect]
     Active Substance: TOCILIZUMAB
     Route: 016
  292. ACTEMRA [Suspect]
     Active Substance: TOCILIZUMAB
     Route: 042
  293. ACTEMRA [Suspect]
     Active Substance: TOCILIZUMAB
     Route: 065
  294. ACTEMRA [Suspect]
     Active Substance: TOCILIZUMAB
     Route: 042
  295. ACTEMRA [Suspect]
     Active Substance: TOCILIZUMAB
     Route: 042
  296. ACTEMRA [Suspect]
     Active Substance: TOCILIZUMAB
     Route: 016
  297. ACTEMRA [Suspect]
     Active Substance: TOCILIZUMAB
     Route: 058
  298. ACTEMRA [Suspect]
     Active Substance: TOCILIZUMAB
     Dosage: 752 MG, WE (752 MG, QW)
     Route: 042
  299. ACTEMRA [Suspect]
     Active Substance: TOCILIZUMAB
     Route: 061
  300. ACTEMRA [Suspect]
     Active Substance: TOCILIZUMAB
     Route: 016
  301. ACTEMRA [Suspect]
     Active Substance: TOCILIZUMAB
     Dosage: 2912 MG, WE (2912 MG, QW)
     Route: 065
  302. ACTEMRA [Suspect]
     Active Substance: TOCILIZUMAB
     Dosage: 1 DF, WE (1 DOSAGE FORM, QW)
     Route: 058
  303. ACTEMRA [Suspect]
     Active Substance: TOCILIZUMAB
     Route: 065
  304. ACTEMRA [Suspect]
     Active Substance: TOCILIZUMAB
     Dosage: 1 DF, WE (1 DOSAGE FORM, QW)
     Route: 042
  305. ACTEMRA [Suspect]
     Active Substance: TOCILIZUMAB
     Route: 042
  306. ACTEMRA [Suspect]
     Active Substance: TOCILIZUMAB
     Route: 042
  307. ACTEMRA [Suspect]
     Active Substance: TOCILIZUMAB
     Route: 048
  308. ACTEMRA [Suspect]
     Active Substance: TOCILIZUMAB
     Dosage: UNK UNK, WE (UNK, QW)
     Route: 058
  309. ACTEMRA [Suspect]
     Active Substance: TOCILIZUMAB
     Route: 042
  310. ACTEMRA [Suspect]
     Active Substance: TOCILIZUMAB
     Route: 042
  311. ACTEMRA [Suspect]
     Active Substance: TOCILIZUMAB
     Route: 042
  312. ACTEMRA [Suspect]
     Active Substance: TOCILIZUMAB
     Route: 042
  313. ACTEMRA [Suspect]
     Active Substance: TOCILIZUMAB
     Dosage: 3011.2 MG, WE (3011.2 MG, QW)
     Route: 058
  314. ACTEMRA [Suspect]
     Active Substance: TOCILIZUMAB
     Route: 016
  315. ACTEMRA [Suspect]
     Active Substance: TOCILIZUMAB
     Route: 065
  316. ACTEMRA [Suspect]
     Active Substance: TOCILIZUMAB
     Route: 042
  317. ACTEMRA [Suspect]
     Active Substance: TOCILIZUMAB
     Route: 042
  318. ACTEMRA [Suspect]
     Active Substance: TOCILIZUMAB
     Route: 016
  319. ACTEMRA [Suspect]
     Active Substance: TOCILIZUMAB
     Route: 065
  320. ACTEMRA [Suspect]
     Active Substance: TOCILIZUMAB
     Route: 058
  321. ACTEMRA [Suspect]
     Active Substance: TOCILIZUMAB
     Route: 065
  322. ACTEMRA [Suspect]
     Active Substance: TOCILIZUMAB
     Route: 065
  323. ACTEMRA [Suspect]
     Active Substance: TOCILIZUMAB
     Route: 048
  324. ACTEMRA [Suspect]
     Active Substance: TOCILIZUMAB
     Route: 042
  325. ACTEMRA [Suspect]
     Active Substance: TOCILIZUMAB
     Route: 042
  326. ACTEMRA [Suspect]
     Active Substance: TOCILIZUMAB
     Route: 042
  327. ACTEMRA [Suspect]
     Active Substance: TOCILIZUMAB
     Route: 065
  328. ACTEMRA [Suspect]
     Active Substance: TOCILIZUMAB
     Route: 016
  329. ACTEMRA [Suspect]
     Active Substance: TOCILIZUMAB
     Route: 058
  330. ACTEMRA [Suspect]
     Active Substance: TOCILIZUMAB
     Route: 048
  331. ACTEMRA [Suspect]
     Active Substance: TOCILIZUMAB
     Dosage: 2912 MG, WE (2912 MG, QW)
     Route: 042
  332. PREDNISONE [Suspect]
     Active Substance: PREDNISONE
     Indication: Systemic lupus erythematosus
     Route: 065
  333. PREDNISONE [Suspect]
     Active Substance: PREDNISONE
     Indication: Pemphigus
     Route: 065
  334. PREDNISONE [Suspect]
     Active Substance: PREDNISONE
     Indication: Synovitis
     Route: 048
  335. PREDNISONE [Suspect]
     Active Substance: PREDNISONE
     Indication: Psoriatic arthropathy
     Route: 065
  336. PREDNISONE [Suspect]
     Active Substance: PREDNISONE
     Indication: Rheumatoid arthritis
     Route: 048
  337. PREDNISONE [Suspect]
     Active Substance: PREDNISONE
     Indication: Bursitis
     Route: 065
  338. PREDNISONE [Suspect]
     Active Substance: PREDNISONE
     Indication: Inflammation
     Route: 065
  339. PREDNISONE [Suspect]
     Active Substance: PREDNISONE
     Indication: Product used for unknown indication
     Route: 065
  340. PREDNISONE [Suspect]
     Active Substance: PREDNISONE
     Route: 065
  341. PREDNISONE [Suspect]
     Active Substance: PREDNISONE
     Route: 048
  342. PREDNISONE [Suspect]
     Active Substance: PREDNISONE
     Route: 048
  343. PREDNISONE [Suspect]
     Active Substance: PREDNISONE
     Route: 048
  344. ORENCIA [Suspect]
     Active Substance: ABATACEPT
     Indication: Rheumatoid arthritis
     Route: 065
  345. ORENCIA [Suspect]
     Active Substance: ABATACEPT
     Indication: Product used for unknown indication
     Dosage: 17.875 MG, QD
     Route: 041
  346. ORENCIA [Suspect]
     Active Substance: ABATACEPT
     Dosage: 125 MG, WE (125 MG, QW)
     Route: 058
  347. ORENCIA [Suspect]
     Active Substance: ABATACEPT
     Route: 042
  348. ORENCIA [Suspect]
     Active Substance: ABATACEPT
     Route: 058
  349. ORENCIA [Suspect]
     Active Substance: ABATACEPT
     Route: 065
  350. ORENCIA [Suspect]
     Active Substance: ABATACEPT
     Route: 015
  351. ORENCIA [Suspect]
     Active Substance: ABATACEPT
     Dosage: 18 MG, QD
     Route: 058
  352. ORENCIA [Suspect]
     Active Substance: ABATACEPT
     Dosage: 17.875 MG, QD
     Route: 058
  353. ORENCIA [Suspect]
     Active Substance: ABATACEPT
     Route: 058
  354. ORENCIA [Suspect]
     Active Substance: ABATACEPT
     Route: 042
  355. ORENCIA [Suspect]
     Active Substance: ABATACEPT
     Route: 042
  356. ORENCIA [Suspect]
     Active Substance: ABATACEPT
     Dosage: 6 MG, QD (3 MG, BID)
     Route: 048
  357. ORENCIA [Suspect]
     Active Substance: ABATACEPT
     Dosage: 125 MG, WE (125 MG, QW)
     Route: 058
  358. ORENCIA [Suspect]
     Active Substance: ABATACEPT
     Dosage: 120 MG, WE (120 MG, QW)
     Route: 058
  359. ORENCIA [Suspect]
     Active Substance: ABATACEPT
     Route: 065
  360. ORENCIA [Suspect]
     Active Substance: ABATACEPT
     Route: 065
  361. ORENCIA [Suspect]
     Active Substance: ABATACEPT
     Route: 058
  362. ORENCIA [Suspect]
     Active Substance: ABATACEPT
     Route: 017
  363. ORENCIA [Suspect]
     Active Substance: ABATACEPT
     Route: 058
  364. ORENCIA [Suspect]
     Active Substance: ABATACEPT
     Dosage: 125 MG, WE (125 MG, QW)
     Route: 048
  365. ORENCIA [Suspect]
     Active Substance: ABATACEPT
     Route: 065
  366. ORENCIA [Suspect]
     Active Substance: ABATACEPT
     Route: 017
  367. ORENCIA [Suspect]
     Active Substance: ABATACEPT
     Route: 048
  368. STELARA [Suspect]
     Active Substance: USTEKINUMAB
     Indication: Product used for unknown indication
     Route: 058
  369. STELARA [Suspect]
     Active Substance: USTEKINUMAB
     Indication: Rheumatoid arthritis
     Route: 042
  370. STELARA [Suspect]
     Active Substance: USTEKINUMAB
     Route: 042
  371. STELARA [Suspect]
     Active Substance: USTEKINUMAB
     Route: 058
  372. DILTIAZEM [Suspect]
     Active Substance: DILTIAZEM
     Indication: Product used for unknown indication
     Route: 065
  373. TUMS ULTRA [Suspect]
     Active Substance: CALCIUM CARBONATE
     Indication: Product used for unknown indication
     Route: 065
  374. RITUXIMAB [Suspect]
     Active Substance: RITUXIMAB
     Indication: Rheumatoid arthritis
     Route: 058
  375. RITUXIMAB [Suspect]
     Active Substance: RITUXIMAB
     Route: 042
  376. RITUXIMAB [Suspect]
     Active Substance: RITUXIMAB
     Route: 016
  377. RITUXIMAB [Suspect]
     Active Substance: RITUXIMAB
     Route: 042
  378. RITUXIMAB [Suspect]
     Active Substance: RITUXIMAB
     Route: 058
  379. FOSAMAX [Suspect]
     Active Substance: ALENDRONATE SODIUM
     Indication: Rheumatoid arthritis
     Route: 065
  380. FOSAMAX [Suspect]
     Active Substance: ALENDRONATE SODIUM
     Indication: Product used for unknown indication
     Route: 048
  381. FOSAMAX [Suspect]
     Active Substance: ALENDRONATE SODIUM
     Route: 048
  382. FOSAMAX [Suspect]
     Active Substance: ALENDRONATE SODIUM
     Route: 065
  383. FOSAMAX [Suspect]
     Active Substance: ALENDRONATE SODIUM
     Route: 048
  384. FOSAMAX [Suspect]
     Active Substance: ALENDRONATE SODIUM
     Route: 065
  385. FOSAMAX [Suspect]
     Active Substance: ALENDRONATE SODIUM
     Route: 016
  386. FOSAMAX [Suspect]
     Active Substance: ALENDRONATE SODIUM
     Route: 048
  387. FOSAMAX [Suspect]
     Active Substance: ALENDRONATE SODIUM
     Route: 005
  388. FOSAMAX [Suspect]
     Active Substance: ALENDRONATE SODIUM
     Route: 005
  389. FOSAMAX [Suspect]
     Active Substance: ALENDRONATE SODIUM
     Route: 005
  390. FOSAMAX [Suspect]
     Active Substance: ALENDRONATE SODIUM
     Route: 016
  391. FOSAMAX [Suspect]
     Active Substance: ALENDRONATE SODIUM
     Route: 065
  392. FOSAMAX [Suspect]
     Active Substance: ALENDRONATE SODIUM
     Route: 048
  393. FOSAMAX [Suspect]
     Active Substance: ALENDRONATE SODIUM
     Route: 048
  394. FOSAMAX [Suspect]
     Active Substance: ALENDRONATE SODIUM
     Route: 065
  395. FOSAMAX [Suspect]
     Active Substance: ALENDRONATE SODIUM
     Route: 058
  396. FOSAMAX [Suspect]
     Active Substance: ALENDRONATE SODIUM
     Route: 048
  397. FOSAMAX [Suspect]
     Active Substance: ALENDRONATE SODIUM
     Route: 005
  398. FOSAMAX [Suspect]
     Active Substance: ALENDRONATE SODIUM
     Route: 058
  399. FOSAMAX [Suspect]
     Active Substance: ALENDRONATE SODIUM
     Route: 065
  400. FOSAMAX [Suspect]
     Active Substance: ALENDRONATE SODIUM
     Route: 048
  401. FOSAMAX [Suspect]
     Active Substance: ALENDRONATE SODIUM
     Route: 048
  402. FOSAMAX [Suspect]
     Active Substance: ALENDRONATE SODIUM
     Route: 048
  403. FOSAMAX [Suspect]
     Active Substance: ALENDRONATE SODIUM
     Route: 048
  404. TUMS ULTRA [Suspect]
     Active Substance: CALCIUM CARBONATE
     Indication: Product used for unknown indication
     Route: 065
  405. FLUMETHASONE PIVALATE [Suspect]
     Active Substance: FLUMETHASONE PIVALATE
     Indication: Rheumatoid arthritis
     Route: 065
  406. CHLORHEXIDINE GLUCONATE [Suspect]
     Active Substance: CHLORHEXIDINE GLUCONATE
     Indication: Product used for unknown indication
     Route: 065
  407. CHLORHEXIDINE GLUCONATE [Suspect]
     Active Substance: CHLORHEXIDINE GLUCONATE
     Route: 065
  408. CHLORHEXIDINE GLUCONATE [Suspect]
     Active Substance: CHLORHEXIDINE GLUCONATE
     Route: 065
  409. CHLORHEXIDINE GLUCONATE [Suspect]
     Active Substance: CHLORHEXIDINE GLUCONATE
     Route: 065
  410. CHLORHEXIDINE GLUCONATE [Suspect]
     Active Substance: CHLORHEXIDINE GLUCONATE
     Route: 002
  411. CHLORHEXIDINE GLUCONATE [Suspect]
     Active Substance: CHLORHEXIDINE GLUCONATE
     Route: 002
  412. CHLORHEXIDINE GLUCONATE [Suspect]
     Active Substance: CHLORHEXIDINE GLUCONATE
     Route: 061
  413. CHLORHEXIDINE GLUCONATE [Suspect]
     Active Substance: CHLORHEXIDINE GLUCONATE
     Route: 061
  414. CHLORHEXIDINE GLUCONATE [Suspect]
     Active Substance: CHLORHEXIDINE GLUCONATE
     Route: 048
  415. MOXIFLOXACIN [Suspect]
     Active Substance: MOXIFLOXACIN
     Indication: Product used for unknown indication
     Route: 058
  416. TOFACITINIB CITRATE [Suspect]
     Active Substance: TOFACITINIB CITRATE
     Indication: Product used for unknown indication
     Route: 048
  417. TOFACITINIB CITRATE [Suspect]
     Active Substance: TOFACITINIB CITRATE
     Indication: Psoriatic arthropathy
     Route: 048
  418. TOFACITINIB CITRATE [Suspect]
     Active Substance: TOFACITINIB CITRATE
     Indication: Rheumatoid arthritis
     Route: 065
  419. TOFACITINIB CITRATE [Suspect]
     Active Substance: TOFACITINIB CITRATE
     Route: 065
  420. TOFACITINIB CITRATE [Suspect]
     Active Substance: TOFACITINIB CITRATE
     Route: 058
  421. APREPITANT [Suspect]
     Active Substance: APREPITANT
     Indication: Product used for unknown indication
     Route: 042
  422. APREPITANT [Suspect]
     Active Substance: APREPITANT
     Route: 065
  423. APREPITANT [Suspect]
     Active Substance: APREPITANT
     Route: 048
  424. APREPITANT [Suspect]
     Active Substance: APREPITANT
     Route: 042
  425. HYDROCORTISONE SODIUM SUCCINATE [Suspect]
     Active Substance: HYDROCORTISONE SODIUM SUCCINATE
     Indication: Rheumatoid arthritis
     Route: 065
  426. HYDROCORTISONE SODIUM SUCCINATE [Suspect]
     Active Substance: HYDROCORTISONE SODIUM SUCCINATE
     Indication: Product used for unknown indication
     Route: 003
  427. HYDROCORTISONE SODIUM SUCCINATE [Suspect]
     Active Substance: HYDROCORTISONE SODIUM SUCCINATE
     Route: 058
  428. HYDROCORTISONE SODIUM SUCCINATE [Suspect]
     Active Substance: HYDROCORTISONE SODIUM SUCCINATE
     Route: 065
  429. HYDROCORTISONE SODIUM SUCCINATE [Suspect]
     Active Substance: HYDROCORTISONE SODIUM SUCCINATE
     Route: 065
  430. HYDROCORTISONE SODIUM SUCCINATE [Suspect]
     Active Substance: HYDROCORTISONE SODIUM SUCCINATE
     Route: 061
  431. HYDROCORTISONE SODIUM SUCCINATE [Suspect]
     Active Substance: HYDROCORTISONE SODIUM SUCCINATE
     Route: 061
  432. HYDROCORTISONE SODIUM SUCCINATE [Suspect]
     Active Substance: HYDROCORTISONE SODIUM SUCCINATE
     Route: 065
  433. HYDROCORTISONE SODIUM SUCCINATE [Suspect]
     Active Substance: HYDROCORTISONE SODIUM SUCCINATE
     Route: 048
  434. HYDROCORTISONE SODIUM SUCCINATE [Suspect]
     Active Substance: HYDROCORTISONE SODIUM SUCCINATE
     Route: 058
  435. HUMIRA [Suspect]
     Active Substance: ADALIMUMAB
     Indication: Rheumatoid arthritis
     Route: 058
  436. HUMIRA [Suspect]
     Active Substance: ADALIMUMAB
     Indication: Psoriatic arthropathy
  437. HYDROXYCHLOROQUINE SULFATE [Suspect]
     Active Substance: HYDROXYCHLOROQUINE SULFATE
     Indication: Product used for unknown indication
     Route: 048
  438. HYDROXYCHLOROQUINE SULFATE [Suspect]
     Active Substance: HYDROXYCHLOROQUINE SULFATE
     Indication: Rheumatoid arthritis
     Route: 048
  439. HYDROXYCHLOROQUINE SULFATE [Suspect]
     Active Substance: HYDROXYCHLOROQUINE SULFATE
     Route: 065
  440. HYDROXYCHLOROQUINE SULFATE [Suspect]
     Active Substance: HYDROXYCHLOROQUINE SULFATE
     Route: 065
  441. HYDROXYCHLOROQUINE SULFATE [Suspect]
     Active Substance: HYDROXYCHLOROQUINE SULFATE
     Route: 065
  442. HYDROXYCHLOROQUINE SULFATE [Suspect]
     Active Substance: HYDROXYCHLOROQUINE SULFATE
     Route: 065
  443. HYDROXYCHLOROQUINE SULFATE [Suspect]
     Active Substance: HYDROXYCHLOROQUINE SULFATE
     Route: 065
  444. HYDROXYCHLOROQUINE SULFATE [Suspect]
     Active Substance: HYDROXYCHLOROQUINE SULFATE
     Route: 065
  445. HYDROXYCHLOROQUINE SULFATE [Suspect]
     Active Substance: HYDROXYCHLOROQUINE SULFATE
     Route: 065
  446. HYDROXYCHLOROQUINE SULFATE [Suspect]
     Active Substance: HYDROXYCHLOROQUINE SULFATE
     Route: 065
  447. HYDROXYCHLOROQUINE SULFATE [Suspect]
     Active Substance: HYDROXYCHLOROQUINE SULFATE
     Route: 065
  448. HYDROXYCHLOROQUINE SULFATE [Suspect]
     Active Substance: HYDROXYCHLOROQUINE SULFATE
     Route: 065
  449. HYDROXYCHLOROQUINE SULFATE [Suspect]
     Active Substance: HYDROXYCHLOROQUINE SULFATE
     Route: 058
  450. HYDROXYCHLOROQUINE SULFATE [Suspect]
     Active Substance: HYDROXYCHLOROQUINE SULFATE
     Route: 065
  451. ORENCIA [Suspect]
     Active Substance: ABATACEPT
     Indication: Rheumatoid arthritis
     Route: 042
  452. ORENCIA [Suspect]
     Active Substance: ABATACEPT
     Route: 042
  453. CETIRIZINE HYDROCHLORIDE [Suspect]
     Active Substance: CETIRIZINE HYDROCHLORIDE
     Indication: Product used for unknown indication
     Route: 065
  454. CETIRIZINE HYDROCHLORIDE [Suspect]
     Active Substance: CETIRIZINE HYDROCHLORIDE
     Indication: Rheumatoid arthritis
     Route: 065
  455. CETIRIZINE HYDROCHLORIDE [Suspect]
     Active Substance: CETIRIZINE HYDROCHLORIDE
     Route: 016
  456. CHLORAPREP [Suspect]
     Active Substance: CHLORHEXIDINE GLUCONATE\ISOPROPYL ALCOHOL
     Indication: Product used for unknown indication
     Route: 061
  457. CHLORAPREP [Suspect]
     Active Substance: CHLORHEXIDINE GLUCONATE\ISOPROPYL ALCOHOL
     Route: 065
  458. CHLORAPREP [Suspect]
     Active Substance: CHLORHEXIDINE GLUCONATE\ISOPROPYL ALCOHOL
     Route: 048
  459. CHLORAPREP [Suspect]
     Active Substance: CHLORHEXIDINE GLUCONATE\ISOPROPYL ALCOHOL
     Route: 061
  460. DOXYCYCLINE [Suspect]
     Active Substance: DOXYCYCLINE
     Indication: Product used for unknown indication
     Route: 065
  461. ASACOL [Suspect]
     Active Substance: MESALAMINE
     Indication: Product used for unknown indication
     Route: 065
  462. ENBREL [Suspect]
     Active Substance: ETANERCEPT
     Indication: Psoriatic arthropathy
     Dosage: 20 MG, QD
     Route: 058
  463. ENBREL [Suspect]
     Active Substance: ETANERCEPT
     Indication: Rheumatoid arthritis
     Route: 058
  464. ENBREL [Suspect]
     Active Substance: ETANERCEPT
     Indication: Product used for unknown indication
     Route: 065
  465. ENBREL [Suspect]
     Active Substance: ETANERCEPT
     Route: 065
  466. ENBREL [Suspect]
     Active Substance: ETANERCEPT
     Dosage: 20 MG
     Route: 058
  467. ENBREL [Suspect]
     Active Substance: ETANERCEPT
     Route: 065
  468. ENBREL [Suspect]
     Active Substance: ETANERCEPT
     Dosage: 50 MG, WE (50 MG, QW)
     Route: 058
  469. ENBREL [Suspect]
     Active Substance: ETANERCEPT
     Route: 058
  470. ENBREL [Suspect]
     Active Substance: ETANERCEPT
     Route: 058
  471. XELJANZ [Suspect]
     Active Substance: TOFACITINIB CITRATE
     Indication: Product used for unknown indication
     Route: 065
  472. XELJANZ [Suspect]
     Active Substance: TOFACITINIB CITRATE
     Indication: Rheumatoid arthritis
     Route: 048
  473. XELJANZ [Suspect]
     Active Substance: TOFACITINIB CITRATE
     Route: 065
  474. XELJANZ [Suspect]
     Active Substance: TOFACITINIB CITRATE
     Route: 065
  475. XELJANZ [Suspect]
     Active Substance: TOFACITINIB CITRATE
     Route: 065
  476. XELJANZ [Suspect]
     Active Substance: TOFACITINIB CITRATE
     Route: 048
  477. XELJANZ [Suspect]
     Active Substance: TOFACITINIB CITRATE
     Route: 065
  478. XELJANZ [Suspect]
     Active Substance: TOFACITINIB CITRATE
     Route: 065
  479. XELJANZ [Suspect]
     Active Substance: TOFACITINIB CITRATE
     Route: 065
  480. XELJANZ [Suspect]
     Active Substance: TOFACITINIB CITRATE
     Route: 065
  481. OXYCODONE TEREPHTHALATE [Suspect]
     Active Substance: OXYCODONE TEREPHTHALATE
     Indication: Product used for unknown indication
     Route: 065
  482. INFLIXIMAB [Suspect]
     Active Substance: INFLIXIMAB
     Indication: Rheumatoid arthritis
     Route: 042
  483. INFLIXIMAB [Suspect]
     Active Substance: INFLIXIMAB
     Route: 042
  484. INFLIXIMAB [Suspect]
     Active Substance: INFLIXIMAB
     Route: 042
  485. INFLIXIMAB [Suspect]
     Active Substance: INFLIXIMAB
     Route: 065
  486. INFLIXIMAB [Suspect]
     Active Substance: INFLIXIMAB
     Route: 065
  487. LEFLUNOMIDE [Suspect]
     Active Substance: LEFLUNOMIDE
     Indication: Rheumatoid arthritis
     Route: 048
  488. LEFLUNOMIDE [Suspect]
     Active Substance: LEFLUNOMIDE
     Indication: Product used for unknown indication
     Route: 048
  489. LEFLUNOMIDE [Suspect]
     Active Substance: LEFLUNOMIDE
     Route: 048
  490. ERELZI [Suspect]
     Active Substance: ETANERCEPT-SZZS
     Indication: Rheumatoid arthritis
     Dosage: 50 MG, WE (50 MG, QW)
     Route: 058
  491. ERELZI [Suspect]
     Active Substance: ETANERCEPT-SZZS
     Indication: Product used for unknown indication
     Route: 058
  492. ERELZI [Suspect]
     Active Substance: ETANERCEPT-SZZS
     Route: 065
  493. ERELZI [Suspect]
     Active Substance: ETANERCEPT-SZZS
     Route: 065
  494. ERELZI [Suspect]
     Active Substance: ETANERCEPT-SZZS
     Dosage: 50 MG, WE (50 MG, QW)
     Route: 065
  495. CELECOXIB [Suspect]
     Active Substance: CELECOXIB
     Indication: Product used for unknown indication
     Route: 065
  496. CELECOXIB [Suspect]
     Active Substance: CELECOXIB
     Indication: Rheumatoid arthritis
     Dosage: 1 DF, QD (1 DOSAGE FORM, QD)
     Route: 065
  497. COSENTYX [Concomitant]
     Active Substance: SECUKINUMAB
     Indication: Product used for unknown indication
  498. COSENTYX [Concomitant]
     Active Substance: SECUKINUMAB
     Indication: Rheumatoid arthritis
     Route: 005
  499. COSENTYX [Concomitant]
     Active Substance: SECUKINUMAB
     Indication: Psoriatic arthropathy
     Route: 005
  500. COSENTYX [Concomitant]
     Active Substance: SECUKINUMAB
     Route: 042
  501. CERTOLIZUMAB PEGOL [Suspect]
     Active Substance: CERTOLIZUMAB PEGOL
     Indication: Product used for unknown indication
     Route: 065
  502. CERTOLIZUMAB PEGOL [Suspect]
     Active Substance: CERTOLIZUMAB PEGOL
     Route: 065
  503. LEFLUNOMIDE [Suspect]
     Active Substance: LEFLUNOMIDE
     Indication: Rheumatoid arthritis
     Route: 048
  504. LEFLUNOMIDE [Suspect]
     Active Substance: LEFLUNOMIDE
     Route: 048
  505. LEFLUNOMIDE [Suspect]
     Active Substance: LEFLUNOMIDE
     Route: 065
  506. LEFLUNOMIDE [Suspect]
     Active Substance: LEFLUNOMIDE
     Route: 048
  507. CORTISONE ACETATE [Suspect]
     Active Substance: CORTISONE ACETATE
     Indication: Product used for unknown indication
     Route: 050
  508. CORTISONE ACETATE [Suspect]
     Active Substance: CORTISONE ACETATE
     Indication: Rheumatoid arthritis
     Route: 048
  509. CORTISONE ACETATE [Suspect]
     Active Substance: CORTISONE ACETATE
     Route: 048
  510. CORTISONE ACETATE [Suspect]
     Active Substance: CORTISONE ACETATE
     Route: 061
  511. CORTISONE ACETATE [Suspect]
     Active Substance: CORTISONE ACETATE
     Route: 061
  512. CORTISONE ACETATE [Suspect]
     Active Substance: CORTISONE ACETATE
     Route: 065
  513. ALENDRONIC ACID [Suspect]
     Active Substance: ALENDRONIC ACID
     Indication: Rheumatoid arthritis
     Route: 065
  514. ALENDRONIC ACID [Suspect]
     Active Substance: ALENDRONIC ACID
     Route: 016
  515. ALENDRONIC ACID [Suspect]
     Active Substance: ALENDRONIC ACID
     Route: 048
  516. ALENDRONIC ACID [Suspect]
     Active Substance: ALENDRONIC ACID
     Route: 065
  517. ALENDRONIC ACID [Suspect]
     Active Substance: ALENDRONIC ACID
     Route: 065
  518. SULFAMETHOXAZOLE AND TRIMETHOPRIM [Suspect]
     Active Substance: SULFAMETHOXAZOLE\TRIMETHOPRIM
     Indication: Product used for unknown indication
     Route: 065
  519. SULFAMETHOXAZOLE AND TRIMETHOPRIM [Suspect]
     Active Substance: SULFAMETHOXAZOLE\TRIMETHOPRIM
     Route: 067
  520. SULFAMETHOXAZOLE AND TRIMETHOPRIM [Suspect]
     Active Substance: SULFAMETHOXAZOLE\TRIMETHOPRIM
     Route: 065
  521. SULFAMETHOXAZOLE AND TRIMETHOPRIM [Suspect]
     Active Substance: SULFAMETHOXAZOLE\TRIMETHOPRIM
     Route: 065
  522. OTEZLA [Suspect]
     Active Substance: APREMILAST
     Indication: Product used for unknown indication
     Dosage: 6 MG, QD (3 MG, BID)
     Route: 048
  523. OTEZLA [Suspect]
     Active Substance: APREMILAST
     Dosage: 6 MG, QD (3 MG, BID)
     Route: 065
  524. GOLIMUMAB [Suspect]
     Active Substance: GOLIMUMAB
     Indication: Rheumatoid arthritis
     Route: 058
  525. GOLIMUMAB [Suspect]
     Active Substance: GOLIMUMAB
     Route: 065
  526. HYDROXYCHLOROQUINE [Suspect]
     Active Substance: HYDROXYCHLOROQUINE
     Indication: Rheumatoid arthritis
     Route: 048
  527. HYDROXYCHLOROQUINE [Suspect]
     Active Substance: HYDROXYCHLOROQUINE
     Indication: Product used for unknown indication
     Route: 065
  528. HYDROXYCHLOROQUINE [Suspect]
     Active Substance: HYDROXYCHLOROQUINE
     Route: 048
  529. HYDROXYCHLOROQUINE [Suspect]
     Active Substance: HYDROXYCHLOROQUINE
     Dosage: 40 MG, QD
     Route: 065
  530. HYDROXYCHLOROQUINE [Suspect]
     Active Substance: HYDROXYCHLOROQUINE
     Route: 048
  531. HYDROXYCHLOROQUINE [Suspect]
     Active Substance: HYDROXYCHLOROQUINE
     Route: 065
  532. HYDROXYCHLOROQUINE [Suspect]
     Active Substance: HYDROXYCHLOROQUINE
     Route: 048
  533. HYDROXYCHLOROQUINE [Suspect]
     Active Substance: HYDROXYCHLOROQUINE
     Route: 048
  534. COD LIVER OIL [Suspect]
     Active Substance: COD LIVER OIL
     Indication: Product used for unknown indication
     Route: 065
  535. DICLOFENAC SODIUM [Suspect]
     Active Substance: DICLOFENAC SODIUM
     Indication: Product used for unknown indication
     Route: 048
  536. DICLOFENAC SODIUM [Suspect]
     Active Substance: DICLOFENAC SODIUM
  537. DICLOFENAC SODIUM [Suspect]
     Active Substance: DICLOFENAC SODIUM
     Route: 065
  538. DICLOFENAC SODIUM [Suspect]
     Active Substance: DICLOFENAC SODIUM
     Route: 065
  539. PERIOGARD [Suspect]
     Active Substance: CHLORHEXIDINE GLUCONATE
     Indication: Product used for unknown indication
     Route: 065
  540. PERIOGARD [Suspect]
     Active Substance: CHLORHEXIDINE GLUCONATE
     Route: 002
  541. PERIOGARD [Suspect]
     Active Substance: CHLORHEXIDINE GLUCONATE
     Route: 048
  542. PERIOGARD [Suspect]
     Active Substance: CHLORHEXIDINE GLUCONATE
     Route: 065
  543. PREGABALIN [Suspect]
     Active Substance: PREGABALIN
     Indication: Product used for unknown indication
     Route: 065
  544. PHTHALYLSULFATHIAZOLE [Suspect]
     Active Substance: PHTHALYLSULFATHIAZOLE
     Indication: Rheumatoid arthritis
     Route: 042
  545. PHTHALYLSULFATHIAZOLE [Suspect]
     Active Substance: PHTHALYLSULFATHIAZOLE
     Indication: Product used for unknown indication
     Route: 058
  546. PHTHALYLSULFATHIAZOLE [Suspect]
     Active Substance: PHTHALYLSULFATHIAZOLE
     Dosage: DURATION 365 DAYS; 365 DAYS
     Route: 048
  547. PHTHALYLSULFATHIAZOLE [Suspect]
     Active Substance: PHTHALYLSULFATHIAZOLE
     Route: 048
  548. PHTHALYLSULFATHIAZOLE [Suspect]
     Active Substance: PHTHALYLSULFATHIAZOLE
     Route: 048
  549. PHTHALYLSULFATHIAZOLE [Suspect]
     Active Substance: PHTHALYLSULFATHIAZOLE
     Route: 065
  550. PHTHALYLSULFATHIAZOLE [Suspect]
     Active Substance: PHTHALYLSULFATHIAZOLE
     Dosage: DURATION 365 DAYS; 365 DAYS
     Route: 048
  551. PHTHALYLSULFATHIAZOLE [Suspect]
     Active Substance: PHTHALYLSULFATHIAZOLE
     Route: 016
  552. PHTHALYLSULFATHIAZOLE [Suspect]
     Active Substance: PHTHALYLSULFATHIAZOLE
     Route: 065
  553. PHTHALYLSULFATHIAZOLE [Suspect]
     Active Substance: PHTHALYLSULFATHIAZOLE
     Dosage: DURATION 365 DAYS; 365 DAYS
     Route: 065
  554. PHTHALYLSULFATHIAZOLE [Suspect]
     Active Substance: PHTHALYLSULFATHIAZOLE
     Route: 048
  555. PHTHALYLSULFATHIAZOLE [Suspect]
     Active Substance: PHTHALYLSULFATHIAZOLE
     Dosage: DURATION 365 DAYS; 365 DAYS
     Route: 048
  556. PHTHALYLSULFATHIAZOLE [Suspect]
     Active Substance: PHTHALYLSULFATHIAZOLE
     Route: 048
  557. PHTHALYLSULFATHIAZOLE [Suspect]
     Active Substance: PHTHALYLSULFATHIAZOLE
     Route: 048
  558. CETIRIZINE HYDROCHLORIDE\PSEUDOEPHEDRINE HYDROCHLORIDE [Suspect]
     Active Substance: CETIRIZINE HYDROCHLORIDE\PSEUDOEPHEDRINE HYDROCHLORIDE
     Indication: Product used for unknown indication
     Route: 048
  559. CETIRIZINE HYDROCHLORIDE\PSEUDOEPHEDRINE HYDROCHLORIDE [Suspect]
     Active Substance: CETIRIZINE HYDROCHLORIDE\PSEUDOEPHEDRINE HYDROCHLORIDE
     Indication: Rheumatoid arthritis
     Route: 065
  560. CETIRIZINE HYDROCHLORIDE\PSEUDOEPHEDRINE HYDROCHLORIDE [Suspect]
     Active Substance: CETIRIZINE HYDROCHLORIDE\PSEUDOEPHEDRINE HYDROCHLORIDE
     Route: 065
  561. CETIRIZINE HYDROCHLORIDE\PSEUDOEPHEDRINE HYDROCHLORIDE [Suspect]
     Active Substance: CETIRIZINE HYDROCHLORIDE\PSEUDOEPHEDRINE HYDROCHLORIDE
     Route: 065
  562. CETIRIZINE HYDROCHLORIDE\PSEUDOEPHEDRINE HYDROCHLORIDE [Suspect]
     Active Substance: CETIRIZINE HYDROCHLORIDE\PSEUDOEPHEDRINE HYDROCHLORIDE
     Route: 065
  563. SIMPONI [Suspect]
     Active Substance: GOLIMUMAB
     Indication: Product used for unknown indication
     Route: 058
  564. SIMPONI [Suspect]
     Active Substance: GOLIMUMAB
     Indication: Rheumatoid arthritis
     Route: 042
  565. SIMPONI [Suspect]
     Active Substance: GOLIMUMAB
     Route: 052
  566. SIMPONI [Suspect]
     Active Substance: GOLIMUMAB
     Route: 065
  567. SIMPONI [Suspect]
     Active Substance: GOLIMUMAB
     Route: 058
  568. SULFAMETHOXAZOLE [Suspect]
     Active Substance: SULFAMETHOXAZOLE
     Indication: Rheumatoid arthritis
     Route: 065
  569. CALTRATE [Suspect]
     Active Substance: CALCIUM CARBONATE
     Indication: Product used for unknown indication
     Route: 065
  570. ASACOL [Suspect]
     Active Substance: MESALAMINE
     Indication: Product used for unknown indication
     Route: 065
  571. CELECOXIB [Suspect]
     Active Substance: CELECOXIB
     Indication: Product used for unknown indication
  572. CELECOXIB [Suspect]
     Active Substance: CELECOXIB
     Route: 065
  573. IODINE [Suspect]
     Active Substance: IODINE
     Indication: Product used for unknown indication
  574. PANADOL [Suspect]
     Active Substance: ACETAMINOPHEN
     Indication: Rheumatoid arthritis
     Route: 065
  575. PANADOL [Suspect]
     Active Substance: ACETAMINOPHEN
     Indication: Pyrexia
     Route: 065
  576. PANADOL [Suspect]
     Active Substance: ACETAMINOPHEN
     Indication: Pain
     Route: 065
  577. DICLOFENAC SODIUM [Suspect]
     Active Substance: DICLOFENAC SODIUM
     Indication: Product used for unknown indication
     Route: 065
  578. DICLOFENAC SODIUM [Suspect]
     Active Substance: DICLOFENAC SODIUM
     Route: 065
  579. DICLOFENAC SODIUM [Suspect]
     Active Substance: DICLOFENAC SODIUM
     Route: 048

REACTIONS (52)
  - Liver injury [Fatal]
  - Fibromyalgia [Fatal]
  - Intentional product use issue [Fatal]
  - Bursitis [Fatal]
  - Hypoaesthesia [Fatal]
  - Lower respiratory tract infection [Fatal]
  - Nasopharyngitis [Fatal]
  - X-ray abnormal [Fatal]
  - Alopecia [Fatal]
  - C-reactive protein increased [Fatal]
  - Blister [Fatal]
  - Blood cholesterol increased [Fatal]
  - Decreased appetite [Fatal]
  - Autoimmune disorder [Fatal]
  - Obesity [Fatal]
  - Muscle spasms [Fatal]
  - Anti-cyclic citrullinated peptide antibody [Fatal]
  - Impaired healing [Fatal]
  - Headache [Fatal]
  - Asthenia [Fatal]
  - Glossodynia [Fatal]
  - Confusional state [Fatal]
  - Asthma [Fatal]
  - C-reactive protein abnormal [Fatal]
  - Gastrointestinal disorder [Fatal]
  - Muscle injury [Fatal]
  - Contusion [Fatal]
  - Deep vein thrombosis postoperative [Fatal]
  - Oedema peripheral [Fatal]
  - Chest pain [Fatal]
  - Musculoskeletal stiffness [Fatal]
  - Abdominal pain [Fatal]
  - Drug intolerance [Fatal]
  - Condition aggravated [Fatal]
  - Pain in extremity [Fatal]
  - Folliculitis [Fatal]
  - Hypersensitivity [Fatal]
  - Joint swelling [Fatal]
  - Bone erosion [Fatal]
  - Lung disorder [Fatal]
  - Facet joint syndrome [Fatal]
  - Underdose [Fatal]
  - Drug hypersensitivity [Fatal]
  - Lower limb fracture [Fatal]
  - Helicobacter infection [Fatal]
  - Injury [Fatal]
  - Anxiety [Fatal]
  - Musculoskeletal pain [Fatal]
  - Fatigue [Fatal]
  - Gait inability [Fatal]
  - Hand deformity [Fatal]
  - Night sweats [Fatal]
